FAERS Safety Report 8815002 (Version 2)
Quarter: 2013Q1

REPORT INFORMATION
  Report Type: Spontaneous
  Country: JP (occurrence: JP)
  Receive Date: 20120928
  Receipt Date: 20130226
  Transmission Date: 20140127
  Serious: Yes (Death, Hospitalization)
  Sender: FDA-Public Use
  Company Number: JP-PFIZER INC-2012240218

PATIENT
  Age: 80 Year
  Sex: Male

DRUGS (4)
  1. IRINOTECAN HCL [Suspect]
     Indication: RECTAL CANCER
     Dosage: UNK, ONCE A DAY
     Route: 041
  2. LEVOFOLINATE [Suspect]
     Indication: RECTAL CANCER
     Dosage: UNK, ONCE A DAY
     Route: 041
  3. 5-FU [Suspect]
     Indication: RECTAL CANCER
     Dosage: UNK, ONCE A DAY
     Route: 040
  4. 5-FU [Suspect]
     Dosage: UNK, ONCE A 2DAYS
     Route: 041

REACTIONS (1)
  - Interstitial lung disease [Fatal]
